FAERS Safety Report 19465767 (Version 2)
Quarter: 2021Q2

REPORT INFORMATION
  Report Type: Spontaneous
  Country: ES (occurrence: ES)
  Receive Date: 20210626
  Receipt Date: 20210626
  Transmission Date: 20210717
  Serious: Yes (Life-Threatening, Hospitalization)
  Sender: FDA-Public Use
  Company Number: ES-TEVA-2021-ES-1924830

PATIENT
  Age: 26 Year
  Sex: Female

DRUGS (3)
  1. AMOXICILINA (108A) [Suspect]
     Active Substance: AMOXICILLIN
     Indication: ENDODONTIC PROCEDURE
     Dosage: 2250 MILLIGRAM DAILY; 1?1?1
     Route: 048
     Dates: start: 20181108, end: 20181113
  2. SALOFALK [AMINOSALICYLIC ACID] [Suspect]
     Active Substance: AMINOSALICYLIC ACID
     Indication: CROHN^S DISEASE
     Dosage: 2 DOSAGE FORMS DAILY; 1?0?1; GASTRORE?RESISTANT PROLONGED RELEASE GRANULATE
     Route: 048
     Dates: start: 20161212, end: 20181110
  3. METAMIZOL (111A) [Suspect]
     Active Substance: METAMIZOL SODIUM
     Indication: ENDODONTIC PROCEDURE
     Dosage: 3 DOSAGE FORMS DAILY; 1?1?1
     Route: 048
     Dates: start: 20181108, end: 20181113

REACTIONS (3)
  - Agranulocytosis [Recovered/Resolved]
  - Leukopenia [Recovered/Resolved]
  - Thrombocytopenia [Recovered/Resolved]

NARRATIVE: CASE EVENT DATE: 20181110
